FAERS Safety Report 8302036-7 (Version None)
Quarter: 2012Q2

REPORT INFORMATION
  Report Type: 
  Country: None (occurrence: None)
  Receive Date: 20120420
  Receipt Date: 20120410
  Transmission Date: 20120825
  Serious: Yes (Other)
  Sender: FDA-Public Use
  Company Number: US-MERCK-1203USA01741

PATIENT
  Age: 70 Year
  Sex: Male

DRUGS (3)
  1. FENTANYL [Concomitant]
     Route: 065
  2. SUCRALFATE [Concomitant]
     Route: 065
  3. INVANZ [Suspect]
     Indication: INFECTION
     Route: 042
     Dates: start: 20100101, end: 20110601

REACTIONS (4)
  - BLOOD PRESSURE INCREASED [None]
  - BLINDNESS UNILATERAL [None]
  - CONVULSION [None]
  - OPTIC ISCHAEMIC NEUROPATHY [None]
